FAERS Safety Report 22121190 (Version 1)
Quarter: 2023Q1

REPORT INFORMATION
  Report Type: Spontaneous
  Country: US (occurrence: None)
  Receive Date: 20230321
  Receipt Date: 20230321
  Transmission Date: 20230417
  Serious: Yes (Other)
  Sender: FDA-Public Use
  Company Number: None

PATIENT
  Age: 88 Year
  Sex: Male
  Weight: 89 kg

DRUGS (1)
  1. OXYCODONE [Suspect]
     Active Substance: OXYCODONE
     Indication: Pain
     Dosage: FREQUENCY : AS NEEDED;?
     Route: 048

REACTIONS (3)
  - Hallucination, visual [None]
  - Hypercalcaemia [None]
  - Adverse drug reaction [None]

NARRATIVE: CASE EVENT DATE: 20230224
